FAERS Safety Report 6314173-7 (Version None)
Quarter: 2009Q3

REPORT INFORMATION
  Report Type: 
  Country: None (occurrence: None)
  Receive Date: 20090818
  Receipt Date: 20090813
  Transmission Date: 20100115
  Serious: Yes (Other)
  Sender: FDA-Public Use
  Company Number: PHHY2009PT34175

PATIENT
  Sex: Female

DRUGS (5)
  1. CERTICAN [Suspect]
     Dosage: 1.5 MG DAILY
  2. CERTICAN [Suspect]
     Dosage: 1.25 MG DAILY
  3. MYCOPHENOLATE SODIUM [Concomitant]
     Dosage: 100 MG DAILY
     Route: 048
  4. ALPRICORTINOL [Concomitant]
     Dosage: 15 MG DAILY
  5. INEGY [Concomitant]
     Dosage: 10/10 MG DAILY
     Route: 048

REACTIONS (3)
  - MUSCULAR WEAKNESS [None]
  - NEUROPATHY PERIPHERAL [None]
  - PARAESTHESIA [None]
